FAERS Safety Report 5661583-7 (Version None)
Quarter: 2008Q1

REPORT INFORMATION
  Report Type: 
  Country: None (occurrence: None)
  Receive Date: 20080312
  Receipt Date: 20080307
  Transmission Date: 20080703
  Serious: Yes (Other)
  Sender: FDA-Public Use
  Company Number: PHNU2008DE00987

PATIENT
  Sex: Male

DRUGS (4)
  1. PREDNISONE [Concomitant]
     Dosage: 15MG/DAY
  2. CORTISONE [Concomitant]
     Dosage: 8-12MG/DAY
  3. GLUCOCORTICOIDS [Suspect]
  4. MYFORTIC [Suspect]
     Indication: DERMATITIS ATOPIC
     Dosage: 720MG/DAY
     Route: 048
     Dates: start: 20060201

REACTIONS (2)
  - JOINT ARTHROPLASTY [None]
  - LYMPHOPENIA [None]
